FAERS Safety Report 5125352-9 (Version None)
Quarter: 2006Q4

REPORT INFORMATION
  Report Type: 
  Country: None (occurrence: None)
  Receive Date: 20061011
  Receipt Date: 20060713
  Transmission Date: 20070319
  Serious: Yes (Hospitalization)
  Sender: FDA-Public Use
  Company Number: AU-MERCK-0607AUS00048

PATIENT

DRUGS (11)
  1. FOSAMAX [Suspect]
     Indication: BONE DENSITY DECREASED
     Route: 048
  2. MELOXICAM [Suspect]
     Route: 065
  3. PANTOPRAZOLE SODIUM [Concomitant]
     Route: 065
  4. SULFASALAZINE [Concomitant]
     Route: 065
  5. PREDNISONE TAB [Suspect]
     Route: 065
  6. ACETAMINOPHEN [Concomitant]
     Route: 065
  7. ERGOCALCIFEROL [Concomitant]
     Route: 065
  8. DIGOXIN [Concomitant]
     Route: 065
  9. CALCIUM CARBONATE [Concomitant]
     Route: 065
  10. ASPIRIN [Suspect]
     Route: 065
  11. SERTRALINE HYDROCHLORIDE [Concomitant]
     Route: 065

REACTIONS (1)
  - ANAEMIA [None]
